FAERS Safety Report 6839581-7 (Version None)
Quarter: 2010Q3

REPORT INFORMATION
  Report Type: 
  Country: None (occurrence: None)
  Receive Date: 20100714
  Receipt Date: 20100414
  Transmission Date: 20110219
  Serious: No
  Sender: FDA-Public Use
  Company Number: A0855021A

PATIENT
  Age: 59 Year
  Sex: Female

DRUGS (14)
  1. FLOVENT [Suspect]
     Indication: ASTHMA
     Dosage: 2PUFF TWICE PER DAY
     Route: 055
     Dates: start: 20100329
  2. ALBUTEROL [Concomitant]
  3. SINGULAIR [Concomitant]
  4. FUROSEMIDE [Concomitant]
  5. LISINOPRIL [Concomitant]
  6. NEXIUM [Concomitant]
  7. ACTOS [Concomitant]
  8. GLIMEPIRIDE [Concomitant]
  9. LIPITOR [Concomitant]
  10. TRANXENE [Concomitant]
  11. PROPOXYPHENE NAPSYLATE [Concomitant]
  12. VITAMINS [Concomitant]
  13. CETIRIZINE HCL [Concomitant]
  14. SILVER SULPHADIAZINE CREAM [Concomitant]

REACTIONS (1)
  - DRUG INEFFECTIVE [None]
